FAERS Safety Report 7245087-6 (Version None)
Quarter: 2011Q1

REPORT INFORMATION
  Report Type: 
  Country: None (occurrence: None)
  Receive Date: 20110126
  Receipt Date: 20110121
  Transmission Date: 20110831
  Serious: Yes (Hospitalization, Other)
  Sender: FDA-Public Use
  Company Number: NL-ABBOTT-10P-114-0673991-00

PATIENT
  Weight: 65 kg

DRUGS (8)
  1. HUMIRA [Suspect]
  2. TEMAZEPAM [Concomitant]
     Indication: INSOMNIA
     Dosage: PRN
     Route: 048
     Dates: start: 20000101
  3. HUMIRA [Suspect]
     Route: 058
     Dates: start: 20080601, end: 20091101
  4. SOLG VIT D3 OF NATURE PHYSICIAN [Concomitant]
     Indication: OSTEOPOROSIS PROPHYLAXIS
     Route: 048
     Dates: start: 20060101
  5. HUMIRA [Suspect]
     Dates: start: 20091207, end: 20101001
  6. CALCLUMCOMPLEX OF NATURE PHYSICIAN [Concomitant]
     Indication: OSTEOPOROSIS PROPHYLAXIS
     Route: 048
     Dates: start: 20060101
  7. VIT B12 OF NATURE PHYSICIAN [Concomitant]
     Indication: POLYNEUROPATHY
     Route: 048
     Dates: start: 20090101
  8. HUMIRA [Suspect]
     Indication: RHEUMATOID ARTHRITIS
     Route: 058
     Dates: start: 20070405, end: 20080601

REACTIONS (6)
  - ABDOMINAL PAIN [None]
  - COLON NEOPLASM [None]
  - POLYNEUROPATHY [None]
  - RHEUMATOID ARTHRITIS [None]
  - DIARRHOEA [None]
  - NAUSEA [None]
